FAERS Safety Report 11714746 (Version 2)
Quarter: 2016Q2

REPORT INFORMATION
  Report Type: Report from Study
  Country: US (occurrence: US)
  Receive Date: 20151109
  Receipt Date: 20160405
  Transmission Date: 20160815
  Serious: No
  Sender: FDA-Public Use
  Company Number: ADR-2014-01687

PATIENT
  Age: 44 Year
  Sex: Male

DRUGS (8)
  1. BUPIVACAINE. [Suspect]
     Active Substance: BUPIVACAINE
     Dosage: 8.61MG/DAY
     Route: 037
  2. CLONIDINE. [Suspect]
     Active Substance: CLONIDINE
     Dosage: 200.02 MCG/DAY
     Route: 037
     Dates: start: 20141124
  3. COMPOUNDED BACLOFEN [Suspect]
     Active Substance: BACLOFEN
     Dosage: 41.62MCG/DAY
     Route: 037
     Dates: end: 20141124
  4. FENTANYL. [Suspect]
     Active Substance: FENTANYL
     Dosage: 57.4MCG/DAY
     Route: 037
  5. HYDROMORPHONE. [Suspect]
     Active Substance: HYDROMORPHONE
     Dosage: 0.5001 MG/DAY
     Route: 037
     Dates: start: 20141124
  6. BUPIVACAINE. [Suspect]
     Active Substance: BUPIVACAINE
     Dosage: 15.002 MG/DAY
     Route: 037
     Dates: start: 20141124
  7. CLONIDINE. [Suspect]
     Active Substance: CLONIDINE
     Dosage: 143.51MCG/DAY
     Route: 037
  8. OXYCODONE [Concomitant]
     Active Substance: OXYCODONE

REACTIONS (6)
  - Dry mouth [Recovered/Resolved]
  - Urinary retention [Recovered/Resolved]
  - Sedation [Recovered/Resolved]
  - Dizziness [Recovered/Resolved]
  - Drooling [Recovered/Resolved]
  - Nasal dryness [Recovered/Resolved]
